FAERS Safety Report 4618014-5 (Version None)
Quarter: 2005Q1

REPORT INFORMATION
  Report Type: 
  Country: None (occurrence: None)
  Receive Date: 20050322
  Receipt Date: 20050307
  Transmission Date: 20050727
  Serious: Yes (Other)
  Sender: FDA-Public Use
  Company Number: 2005042265

PATIENT
  Age: 65 Year
  Sex: Male

DRUGS (1)
  1. VORICONAZOLE (VORICONAZOLE) [Suspect]
     Indication: BRONCHOPULMONARY ASPERGILLOSIS

REACTIONS (3)
  - EXOPHTHALMOS [None]
  - SINUSITIS [None]
  - ZYGOMYCOSIS [None]
